FAERS Safety Report 9037151 (Version 1)
Quarter: 2012Q4

REPORT INFORMATION
  Report Type: Spontaneous
  Country: US (occurrence: None)
  Receive Date: 20121207
  Receipt Date: 20121207
  Transmission Date: 20130627
  Serious: Yes (Hospitalization, Other)
  Sender: FDA-Public Use
  Company Number: AEUSA201200534

PATIENT
  Age: 84 Year
  Sex: Female
  Weight: 54.5 kg

DRUGS (32)
  1. GAMUNEX-C [Suspect]
     Route: 042
     Dates: start: 20120808
  2. FUROSEMIDE [Suspect]
  3. DIPHENHYDRAMINE [Concomitant]
  4. ADVAIR [Concomitant]
  5. MYLANTA [Concomitant]
  6. CALCIUM ASCORBATE [Concomitant]
  7. ASPIRIN [Concomitant]
  8. LIPITOR [Concomitant]
  9. PREMARIN [Concomitant]
  10. ELESTAT [Concomitant]
  11. VITAMIN D /00107901/ [Concomitant]
  12. INEXIUM /01479302/ [Concomitant]
  13. ESTRACE [Concomitant]
  14. FISH OIL [Concomitant]
  15. SYNTHROID [Concomitant]
  16. LIDODERM [Concomitant]
  17. ATIVAN [Concomitant]
  18. LYSINE [Concomitant]
  19. SOLUMEDROL(METHYLPREDNISOLONE SODIUM SUCCINATE) INFUSION [Concomitant]
  20. LOPRESSOR [Concomitant]
  21. THERAGAN [Concomitant]
  22. NITROLINGUAL [Concomitant]
  23. PERCOCET /00446701/ [Concomitant]
  24. MIRALAX [Concomitant]
  25. POTASSIUM CHLORIDE [Concomitant]
  26. PROAIR HFA [Concomitant]
  27. DOCUSATE SODIUM [Concomitant]
  28. TRIMETHOPRIM SULFAMETHOXAZOLE [Concomitant]
  29. VITAMIN E [Concomitant]
  30. ZINC GLUCONATE [Concomitant]
  31. ULTRAM [Concomitant]
  32. IMURAN /00001501/ [Concomitant]

REACTIONS (3)
  - Renal failure acute [None]
  - Urinary tract infection [None]
  - Atelectasis [None]
